FAERS Safety Report 5680788-2 (Version None)
Quarter: 2008Q1

REPORT INFORMATION
  Report Type: 
  Country: None (occurrence: None)
  Receive Date: 20080326
  Receipt Date: 20080319
  Transmission Date: 20080703
  Serious: Yes (Hospitalization, Other)
  Sender: FDA-Public Use
  Company Number: US-BOEHRINGER INGELHEIM GMBH, GERMANY-2008-BP-01151BP

PATIENT
  Sex: Female

DRUGS (4)
  1. MELOXICAM [Suspect]
     Indication: OSTEOARTHRITIS
     Route: 048
     Dates: start: 20071101, end: 20080101
  2. MELOXICAM [Suspect]
     Indication: PAIN
  3. EFFEXOR XR [Concomitant]
  4. ENALAPRIL MALEATE [Concomitant]

REACTIONS (10)
  - ASTHENIA [None]
  - FAECES DISCOLOURED [None]
  - GASTRIC ULCER [None]
  - HAEMOGLOBIN DECREASED [None]
  - HAEMORRHAGE [None]
  - LOSS OF CONSCIOUSNESS [None]
  - MALAISE [None]
  - MELAENA [None]
  - SYNCOPE [None]
  - VOMITING [None]
